FAERS Safety Report 10095079 (Version 2)
Quarter: 2014Q2

REPORT INFORMATION
  Report Type: Spontaneous
  Country: SK (occurrence: SK)
  Receive Date: 20140422
  Receipt Date: 20140505
  Transmission Date: 20141212
  Serious: Yes (Hospitalization)
  Sender: FDA-Public Use
  Company Number: SK-AMGEN INC.-SVKSP2014027470

PATIENT
  Age: 51 Year
  Sex: Female
  Weight: 62 kg

DRUGS (2)
  1. PROLIA [Suspect]
     Indication: OSTEOPOROSIS POSTMENOPAUSAL
     Dosage: UNK UNK, Q6MO
     Route: 065
     Dates: start: 20120516, end: 20130923
  2. VITAMIN D3 [Concomitant]
     Indication: HYPOVITAMINOSIS
     Dosage: UNK UNK, 2 TIMES/WK
     Route: 048
     Dates: start: 20120919, end: 20140326

REACTIONS (2)
  - C-telopeptide increased [Recovering/Resolving]
  - Hypercalcaemia [Recovering/Resolving]
